FAERS Safety Report 25107243 (Version 1)
Quarter: 2025Q1

REPORT INFORMATION
  Report Type: Spontaneous
  Country: CN (occurrence: CN)
  Receive Date: 20250321
  Receipt Date: 20250321
  Transmission Date: 20250409
  Serious: Yes (Other)
  Sender: ADMA BIOLOGICS
  Company Number: CN-ADMA BIOLOGICS INC.-CN-2025ADM000128

PATIENT

DRUGS (1)
  1. HUMAN IMMUNOGLOBULIN G [Suspect]
     Active Substance: HUMAN IMMUNOGLOBULIN G
     Indication: Myasthenia gravis
     Dosage: 400 MILLIGRAM/KILOGRAM, QD
     Route: 042

REACTIONS (2)
  - Pneumonia [Unknown]
  - Off label use [Unknown]
